FAERS Safety Report 14831978 (Version 5)
Quarter: 2018Q2

REPORT INFORMATION
  Report Type: Spontaneous
  Country: US (occurrence: US)
  Receive Date: 20180501
  Receipt Date: 20180625
  Transmission Date: 20180711
  Serious: Yes (Other)
  Sender: FDA-Public Use
  Company Number: US-CONCORDIA PHARMACEUTICALS INC.-GSH201804-001448

PATIENT
  Age: 63 Year
  Sex: Female

DRUGS (3)
  1. ALENDRONATE [Suspect]
     Active Substance: ALENDRONATE SODIUM
  2. TRIAMTERENE. [Suspect]
     Active Substance: TRIAMTERENE
  3. MELOXICAM. [Suspect]
     Active Substance: MELOXICAM

REACTIONS (5)
  - Tubulointerstitial nephritis [Not Recovered/Not Resolved]
  - Renal failure [Not Recovered/Not Resolved]
  - Nephropathy [Not Recovered/Not Resolved]
  - Focal segmental glomerulosclerosis [Not Recovered/Not Resolved]
  - Nephropathy toxic [Not Recovered/Not Resolved]
